FAERS Safety Report 15750823 (Version 1)
Quarter: 2018Q4

REPORT INFORMATION
  Report Type: Spontaneous
  Country: IR (occurrence: IR)
  Receive Date: 20181221
  Receipt Date: 20181221
  Transmission Date: 20190205
  Serious: Yes (Death, Hospitalization, Other)
  Sender: FDA-Public Use
  Company Number: IR-009507513-1812IRN009299

PATIENT
  Age: 30 Year
  Sex: Female

DRUGS (3)
  1. CABERGOLINE. [Suspect]
     Active Substance: CABERGOLINE
     Indication: INFERTILITY
     Dosage: 0.5 MILLIGRAM TWICE PER WEEK
  2. GONADOTROPIN, CHORIONIC [Suspect]
     Active Substance: CHORIOGONADOTROPIN ALFA
     Dosage: 75 INTERNATIONAL UNIT, EVERY OTHER DAY.
  3. GONADOTROPIN, CHORIONIC [Suspect]
     Active Substance: CHORIOGONADOTROPIN ALFA
     Indication: INFERTILITY
     Dosage: 225 INTERNATIONAL UNIT, PER DAY FOR 6 DAYS

REACTIONS (2)
  - Ovarian hyperstimulation syndrome [Fatal]
  - Inappropriate schedule of product administration [Unknown]
